FAERS Safety Report 5729336-9 (Version None)
Quarter: 2008Q2

REPORT INFORMATION
  Report Type: 
  Country: None (occurrence: None)
  Receive Date: 20080430
  Receipt Date: 20080211
  Transmission Date: 20081010
  Serious: No
  Sender: FDA-Public Use
  Company Number: 2008PV034215

PATIENT
  Age: 44 Year
  Sex: Female

DRUGS (4)
  1. SYMLIN [Suspect]
     Indication: TYPE 1 DIABETES MELLITUS
     Dosage: 60 MCG; SC, 30 MCG
     Route: 058
     Dates: start: 20030101, end: 20030101
  2. SYMLIN [Suspect]
     Indication: TYPE 1 DIABETES MELLITUS
     Dosage: 60 MCG; SC, 30 MCG
     Route: 058
     Dates: start: 20030101, end: 20030101
  3. NOVOLOG [Concomitant]
  4. LANTUS [Concomitant]

REACTIONS (1)
  - NAUSEA [None]
